FAERS Safety Report 5338502-6 (Version None)
Quarter: 2007Q2

REPORT INFORMATION
  Report Type: 
  Country: None (occurrence: None)
  Receive Date: 20070405
  Receipt Date: 20061106
  Transmission Date: 20071010
  Serious: No
  Sender: FDA-Public Use
  Company Number: US200611001204

PATIENT
  Sex: Female

DRUGS (3)
  1. CYMBALTA [Suspect]
     Indication: GASTRIC DISORDER
     Dosage: SEE IMAGE
     Route: 048
     Dates: start: 20060101, end: 20060101
  2. CYMBALTA [Suspect]
     Indication: GASTRIC DISORDER
     Dosage: SEE IMAGE
     Route: 048
     Dates: start: 20060101
  3. OXYGEN (OXYGEN) [Concomitant]

REACTIONS (4)
  - ARTHRALGIA [None]
  - GAIT DISTURBANCE [None]
  - HYPERHIDROSIS [None]
  - LIMB DISCOMFORT [None]
